FAERS Safety Report 23440339 (Version 2)
Quarter: 2024Q1

REPORT INFORMATION
  Report Type: Report from Study
  Country: US (occurrence: US)
  Receive Date: 20240124
  Receipt Date: 20240213
  Transmission Date: 20240410
  Serious: Yes (Other)
  Sender: FDA-Public Use
  Company Number: US-JNJFOC-20240152907

PATIENT
  Sex: Male
  Weight: 56.8 kg

DRUGS (4)
  1. EPOPROSTENOL SODIUM [Suspect]
     Active Substance: EPOPROSTENOL SODIUM
     Indication: Pulmonary arterial hypertension
     Route: 042
  2. SILDENAFIL CITRATE [Concomitant]
     Active Substance: SILDENAFIL CITRATE
  3. OFEV [Concomitant]
     Active Substance: NINTEDANIB
  4. TADALAFIL [Concomitant]
     Active Substance: TADALAFIL

REACTIONS (5)
  - Vascular device occlusion [Unknown]
  - Dyspnoea [Not Recovered/Not Resolved]
  - Underdose [Unknown]
  - Weight decreased [Unknown]
  - Malaise [Unknown]
